FAERS Safety Report 5365007-9 (Version None)
Quarter: 2007Q2

REPORT INFORMATION
  Report Type: 
  Country: None (occurrence: None)
  Receive Date: 20070530
  Receipt Date: 20070126
  Transmission Date: 20071010
  Serious: No
  Sender: FDA-Public Use
  Company Number: 2007PV029102

PATIENT
  Age: 61 Year
  Sex: Female
  Weight: 95.2554 kg

DRUGS (4)
  1. BYETTA [Suspect]
     Indication: DIABETES MELLITUS NON-INSULIN-DEPENDENT
     Dosage: 5 MCG; QPM; SC, 5 MCG; BID; SC
     Route: 058
     Dates: start: 20061201, end: 20061201
  2. BYETTA [Suspect]
     Indication: DIABETES MELLITUS NON-INSULIN-DEPENDENT
     Dosage: 5 MCG; QPM; SC, 5 MCG; BID; SC
     Route: 058
     Dates: start: 20061201, end: 20070124
  3. AMARYL [Concomitant]
  4. NATURAL PATHWAY [Concomitant]

REACTIONS (6)
  - BLOOD GLUCOSE DECREASED [None]
  - HYPERHIDROSIS [None]
  - MENTAL IMPAIRMENT [None]
  - NAUSEA [None]
  - NERVOUSNESS [None]
  - TREMOR [None]
